FAERS Safety Report 9960022 (Version 1)
Quarter: 2014Q1

REPORT INFORMATION
  Report Type: Report from Study
  Country: US (occurrence: US)
  Receive Date: 20140305
  Receipt Date: 20140305
  Transmission Date: 20141002
  Serious: No
  Sender: FDA-Public Use
  Company Number: US-ABBVIE-13P-163-1106518-00

PATIENT
  Age: 46 Year
  Sex: Male
  Weight: 97.61 kg

DRUGS (9)
  1. HUMIRA [Suspect]
     Indication: PSORIASIS
     Dosage: STARTER KIT
     Route: 058
     Dates: start: 20130531, end: 20130531
  2. HUMIRA [Suspect]
     Dates: start: 20130607
  3. FLOVENT [Concomitant]
     Indication: ASTHMA
  4. PREVACID [Concomitant]
     Indication: DYSPEPSIA
  5. ALBUTEROL [Concomitant]
     Indication: ASTHMA
     Route: 055
  6. ZIRTEC [Concomitant]
     Indication: HYPERSENSITIVITY
  7. CLARITIN [Concomitant]
     Indication: HYPERSENSITIVITY
  8. MULTIVITAMIN [Concomitant]
     Indication: PRODUCT USED FOR UNKNOWN INDICATION
  9. RITALIN [Concomitant]
     Indication: ATTENTION DEFICIT/HYPERACTIVITY DISORDER

REACTIONS (3)
  - Arthralgia [Recovered/Resolved]
  - Fatigue [Recovered/Resolved]
  - Nasal congestion [Recovered/Resolved]
